FAERS Safety Report 4665941-9 (Version None)
Quarter: 2005Q2

REPORT INFORMATION
  Report Type: 
  Country: None (occurrence: None)
  Receive Date: 20050517
  Receipt Date: 20050216
  Transmission Date: 20051028
  Serious: No
  Sender: FDA-Public Use
  Company Number: SO5-USA-00889-01

PATIENT
  Age: 83 Year
  Sex: Female

DRUGS (7)
  1. NAMENDA [Suspect]
     Indication: MEMORY IMPAIRMENT
     Dosage: 5 MG QD PO
     Route: 048
     Dates: start: 20050203, end: 20050209
  2. NAMENDA [Suspect]
     Indication: MEMORY IMPAIRMENT
     Dosage: 5 MG BID PO
     Route: 048
     Dates: start: 20050210, end: 20050215
  3. SYNTHROID [Concomitant]
  4. ZETIA [Concomitant]
  5. PAXIL [Concomitant]
  6. ACIPHEX [Concomitant]
  7. VITAMINS (NOS) [Concomitant]

REACTIONS (5)
  - ABDOMINAL DISTENSION [None]
  - DIZZINESS [None]
  - FATIGUE [None]
  - FLATULENCE [None]
  - FREQUENT BOWEL MOVEMENTS [None]
